FAERS Safety Report 10883087 (Version 1)
Quarter: 2015Q1

REPORT INFORMATION
  Report Type: Spontaneous
  Country: US (occurrence: US)
  Receive Date: 20150303
  Receipt Date: 20150303
  Transmission Date: 20150721
  Serious: Yes (Other)
  Sender: FDA-Public Use
  Company Number: US-GLAXOSMITHKLINE-US2015GSK027616

PATIENT
  Age: 66 Year
  Sex: Female

DRUGS (1)
  1. REQUIP XL [Suspect]
     Active Substance: ROPINIROLE HYDROCHLORIDE
     Indication: PARKINSON^S DISEASE
     Dosage: 8 MG, UNK
     Dates: start: 2005

REACTIONS (3)
  - Brain operation [Unknown]
  - Cataract operation [Unknown]
  - Skin cancer [Unknown]

NARRATIVE: CASE EVENT DATE: 20141001
